FAERS Safety Report 6029737-8 (Version None)
Quarter: 2009Q1

REPORT INFORMATION
  Report Type: 
  Country: None (occurrence: None)
  Receive Date: 20090107
  Receipt Date: 20081224
  Transmission Date: 20090719
  Serious: Yes (Other)
  Sender: FDA-Public Use
  Company Number: JP-PFIZER INC-2009150367

PATIENT

DRUGS (4)
  1. HYSRON [Suspect]
     Indication: BREAST CANCER
     Dosage: UNK
     Route: 048
  2. XELODA [Concomitant]
     Dosage: UNK
  3. OXYCONTIN [Concomitant]
     Dosage: UNK
  4. PRIMPERAN TAB [Concomitant]
     Dosage: UNK

REACTIONS (1)
  - DYSKINESIA [None]
